FAERS Safety Report 11890175 (Version 1)
Quarter: 2016Q1

REPORT INFORMATION
  Report Type: Spontaneous
  Country: US (occurrence: US)
  Receive Date: 20160105
  Receipt Date: 20160105
  Transmission Date: 20160526
  Serious: Yes (Other)
  Sender: FDA-Public Use
  Company Number: US-BAYER-2016-001306

PATIENT
  Age: 45 Year
  Sex: Male
  Weight: 138.32 kg

DRUGS (2)
  1. BAYER LOW DOSE [Suspect]
     Active Substance: ASPIRIN
     Indication: ANTIPLATELET THERAPY
     Dosage: 1 DF, BID
     Route: 048
     Dates: start: 2005
  2. NEXIUM [Concomitant]
     Active Substance: ESOMEPRAZOLE MAGNESIUM

REACTIONS (2)
  - Cardiac operation [None]
  - Off label use [None]

NARRATIVE: CASE EVENT DATE: 2005
